FAERS Safety Report 19552943 (Version 1)
Quarter: 2021Q3

REPORT INFORMATION
  Report Type: Report from Study
  Country: US (occurrence: US)
  Receive Date: 20210715
  Receipt Date: 20210715
  Transmission Date: 20211014
  Serious: Yes (Hospitalization, Other)
  Sender: FDA-Public Use
  Company Number: US-TAKEDA-2021TUS038962

PATIENT
  Age: 27 Year
  Sex: Female

DRUGS (8)
  1. FAMOTIDINE. [Concomitant]
     Active Substance: FAMOTIDINE
     Indication: GASTROOESOPHAGEAL REFLUX DISEASE
     Dosage: 20 MILLIGRAM
     Route: 048
     Dates: start: 20200207, end: 20201105
  2. CHOLECALCIFEROL [Concomitant]
     Active Substance: CHOLECALCIFEROL
     Indication: VITAMIN D DEFICIENCY
     Dosage: 3000 UNITS, QD
     Route: 048
     Dates: start: 20201106
  3. TEDUGLUTIDE [Suspect]
     Active Substance: TEDUGLUTIDE
     Indication: SHORT-BOWEL SYNDROME
     Dosage: 3.1 MILLIGRAM (0.05 MG/KG), 7 DOSES PER WEEK
     Route: 065
     Dates: start: 20200630
  4. LEVOFLOXACIN. [Concomitant]
     Active Substance: LEVOFLOXACIN
     Dosage: 750 MILLIGRAM, QD
     Route: 042
     Dates: start: 20210218, end: 20210226
  5. TEDUGLUTIDE [Suspect]
     Active Substance: TEDUGLUTIDE
     Indication: SHORT-BOWEL SYNDROME
     Dosage: 3.1 MILLIGRAM (0.05 MG/KG), 7 DOSES PER WEEK
     Route: 065
     Dates: start: 20200630
  6. TEDUGLUTIDE [Suspect]
     Active Substance: TEDUGLUTIDE
     Indication: SHORT-BOWEL SYNDROME
     Dosage: 3.1 MILLIGRAM (0.05 MG/KG), 7 DOSES PER WEEK
     Route: 065
     Dates: start: 20200630
  7. TEDUGLUTIDE [Suspect]
     Active Substance: TEDUGLUTIDE
     Indication: SHORT-BOWEL SYNDROME
     Dosage: 3.1 MILLIGRAM (0.05 MG/KG), 7 DOSES PER WEEK
     Route: 065
     Dates: start: 20200630
  8. LEVOFLOXACIN. [Concomitant]
     Active Substance: LEVOFLOXACIN
     Indication: BACTERAEMIA
     Dosage: 750 MILLIGRAM, QD
     Route: 042
     Dates: start: 20210101, end: 20210115

REACTIONS (4)
  - Bacteraemia [Recovered/Resolved]
  - COVID-19 [Recovered/Resolved]
  - Pneumonia [Recovered/Resolved]
  - Sepsis [Recovered/Resolved]

NARRATIVE: CASE EVENT DATE: 20201224
